FAERS Safety Report 19750497 (Version 1)
Quarter: 2021Q3

REPORT INFORMATION
  Report Type: Spontaneous
  Country: US (occurrence: US)
  Receive Date: 20210826
  Receipt Date: 20210826
  Transmission Date: 20211014
  Serious: Yes (Other)
  Sender: FDA-Public Use
  Company Number: US-ADVANZ PHARMA-202108005753

PATIENT

DRUGS (5)
  1. PREDNISOLONE. [Suspect]
     Active Substance: PREDNISOLONE
     Indication: EYE INFECTION SYPHILITIC
     Dosage: UNK, TOPICAL (MULTIPLE ROUNDS)
     Route: 061
  2. PREDNISOLONE. [Suspect]
     Active Substance: PREDNISOLONE
     Dosage: 0.12 %
  3. LOTEPREDNOL [Suspect]
     Active Substance: LOTEPREDNOL
     Indication: EYE INFECTION SYPHILITIC
     Dosage: UNK, QD
  4. PREDNISOLONE. [Suspect]
     Active Substance: PREDNISOLONE
     Indication: EYE INFECTION SYPHILITIC
     Dosage: UNK
  5. CYCLOPENTOLATE. [Concomitant]
     Active Substance: CYCLOPENTOLATE
     Indication: EYE INFECTION SYPHILITIC
     Dosage: UNK, IN BOTH EYES (OU)

REACTIONS (2)
  - Therapeutic response decreased [Unknown]
  - Intraocular pressure increased [Recovered/Resolved]
